FAERS Safety Report 21551015 (Version 1)
Quarter: 2022Q4

REPORT INFORMATION
  Report Type: Spontaneous
  Country: JP (occurrence: JP)
  Receive Date: 20221103
  Receipt Date: 20221103
  Transmission Date: 20230112
  Serious: Yes (Other)
  Sender: FDA-Public Use
  Company Number: JP-Eisai-202209912_LEN-EC_P_1

PATIENT
  Sex: Female

DRUGS (3)
  1. LENVIMA [Suspect]
     Active Substance: LENVATINIB
     Indication: Endometrial cancer
     Route: 048
  2. LENVIMA [Suspect]
     Active Substance: LENVATINIB
     Route: 048
  3. KEYTRUDA [Concomitant]
     Active Substance: PEMBROLIZUMAB
     Indication: Endometrial cancer
     Dosage: DOSE AND FREQUENCY UNKNOWN
     Route: 041

REACTIONS (9)
  - Adrenal insufficiency [Unknown]
  - Platelet count decreased [Unknown]
  - Lipase increased [Unknown]
  - Hypertension [Unknown]
  - Drug eruption [Unknown]
  - Hypothyroidism [Unknown]
  - Neutrophil count decreased [Unknown]
  - Blood creatinine increased [Unknown]
  - Palmar-plantar erythrodysaesthesia syndrome [Unknown]
